FAERS Safety Report 8848767 (Version 1)
Quarter: 2012Q4

REPORT INFORMATION
  Report Type: 
  Country: US (occurrence: US)
  Receive Date: 20121018
  Receipt Date: 20121018
  Transmission Date: 20130627
  Serious: No
  Sender: FDA-Public Use
  Company Number: US-B.I. PHARMACEUTICALS,INC./RIDGEFIELD-2012-BP-24227BP

PATIENT
  Age: 55 Year
  Sex: Male

DRUGS (7)
  1. SPIRIVA [Suspect]
     Indication: BRONCHITIS CHRONIC
     Dosage: 18 mcg
     Route: 055
     Dates: start: 20121001
  2. PROBIOTICS [Concomitant]
     Indication: SUPPLEMENTATION THERAPY
     Route: 048
  3. CLONAZAPAM [Concomitant]
     Indication: RESTLESS LEGS SYNDROME
     Dosage: 2 mg
     Route: 048
     Dates: start: 1992
  4. TYLENOL EXTRA STRENGTH [Concomitant]
     Indication: HEADACHE
     Route: 048
  5. DILANTIN [Concomitant]
     Indication: EPILEPSY
     Dosage: 300 mg
     Route: 048
     Dates: start: 1995
  6. DILANTIN [Concomitant]
     Dosage: 60 mg
     Route: 048
     Dates: start: 1995
  7. CHLORDIAZEPOXIDE/CLIDINIUM [Concomitant]
     Indication: IRRITABLE BOWEL SYNDROME
     Route: 048
     Dates: start: 201204

REACTIONS (1)
  - Sputum increased [Not Recovered/Not Resolved]
